FAERS Safety Report 12249367 (Version 1)
Quarter: 2016Q2

REPORT INFORMATION
  Report Type: Spontaneous
  Country: US (occurrence: US)
  Receive Date: 20160408
  Receipt Date: 20160408
  Transmission Date: 20160815
  Serious: No
  Sender: FDA-Public Use
  Company Number: US-WARNER CHILCOTT, LLC-1050379

PATIENT
  Age: 66 Year
  Sex: Female

DRUGS (5)
  1. CALCIUM CHANNEL BLOCKERS [Concomitant]
     Active Substance: UNSPECIFIED INGREDIENT
  2. CARDIZEM [Concomitant]
     Active Substance: DILTIAZEM HYDROCHLORIDE
  3. FEMRING [Suspect]
     Active Substance: ESTRADIOL ACETATE
     Indication: BONE DISORDER
     Route: 067
     Dates: start: 1989
  4. TOPAMAX [Concomitant]
     Active Substance: TOPIRAMATE
  5. GLUCOPHAGE [Concomitant]
     Active Substance: METFORMIN HYDROCHLORIDE

REACTIONS (2)
  - Arthralgia [Not Recovered/Not Resolved]
  - Drug ineffective [None]
